FAERS Safety Report 6314819-3 (Version None)
Quarter: 2009Q3

REPORT INFORMATION
  Report Type: 
  Country: None (occurrence: None)
  Receive Date: 20090819
  Receipt Date: 20090813
  Transmission Date: 20100115
  Serious: Yes (Hospitalization)
  Sender: FDA-Public Use
  Company Number: FR-ASTRAZENECA-2009SE08114

PATIENT
  Age: 31953 Day
  Sex: Female
  Weight: 47.5 kg

DRUGS (14)
  1. NEXIUM [Suspect]
     Route: 048
     Dates: end: 20090629
  2. ALDACTONE [Suspect]
     Route: 048
     Dates: end: 20090628
  3. APROVEL [Suspect]
     Route: 048
     Dates: end: 20090628
  4. LYRICA [Suspect]
     Route: 048
     Dates: end: 20090628
  5. ANAFRANIL [Suspect]
     Route: 048
     Dates: end: 20090628
  6. ZOLOFT [Suspect]
     Route: 048
     Dates: end: 20090628
  7. CYMBALTA [Suspect]
     Route: 048
     Dates: end: 20090628
  8. ZOLPIDEM [Concomitant]
     Route: 048
  9. FLECAINIDE ACETATE [Concomitant]
     Route: 048
  10. ALPRAZOLAM [Concomitant]
     Route: 048
  11. CIFLOX [Concomitant]
  12. URIDOZ [Concomitant]
     Indication: URINARY TRACT INFECTION
  13. DEBRIDAT [Concomitant]
  14. TRANSIPEG [Concomitant]

REACTIONS (2)
  - HYPONATRAEMIA [None]
  - HYPOTENSION [None]
